FAERS Safety Report 19769851 (Version 2)
Quarter: 2021Q4

REPORT INFORMATION
  Report Type: Spontaneous
  Country: US (occurrence: US)
  Receive Date: 20210831
  Receipt Date: 20211203
  Transmission Date: 20220303
  Serious: Yes (Other)
  Sender: FDA-Public Use
  Company Number: US-BRISTOL-MYERS SQUIBB COMPANY-BMS-2021-086683

PATIENT
  Age: 69 Year
  Sex: Male

DRUGS (4)
  1. OPDIVO [Suspect]
     Active Substance: NIVOLUMAB
     Indication: Renal cell carcinoma
     Dosage: UNK
     Route: 065
  2. CABOMETYX [Suspect]
     Active Substance: CABOZANTINIB S-MALATE
     Indication: Renal cell carcinoma
     Dosage: 40 MG
     Route: 065
     Dates: start: 20210616, end: 20210714
  3. CABOMETYX [Suspect]
     Active Substance: CABOZANTINIB S-MALATE
     Dosage: 40 MG, QOD
     Route: 065
     Dates: start: 20210728
  4. CABOMETYX [Suspect]
     Active Substance: CABOZANTINIB S-MALATE
     Dosage: 20 MILLIGRAM
     Route: 065
     Dates: start: 20210830

REACTIONS (13)
  - Malignant neoplasm progression [Unknown]
  - Thyroid hormones increased [Unknown]
  - Skin exfoliation [Unknown]
  - Oral pain [Recovered/Resolved]
  - Rash pruritic [Not Recovered/Not Resolved]
  - Decreased appetite [Recovering/Resolving]
  - Constipation [Recovered/Resolved]
  - Diarrhoea [Recovered/Resolved]
  - Fatigue [Not Recovered/Not Resolved]
  - Asthenia [Unknown]
  - Weight decreased [Recovered/Resolved]
  - Nausea [Recovered/Resolved]
  - Taste disorder [Not Recovered/Not Resolved]
